FAERS Safety Report 11982345 (Version 3)
Quarter: 2020Q3

REPORT INFORMATION
  Report Type: Report from Study
  Country: JP (occurrence: JP)
  Receive Date: 20160201
  Receipt Date: 20161220
  Transmission Date: 20201105
  Serious: Yes (Other)
  Sender: FDA-Public Use
  Company Number: JP-ROCHE-1646047

PATIENT
  Age: 66 Year
  Sex: Male
  Weight: 57 kg

DRUGS (1)
  1. ALECTINIB. [Suspect]
     Active Substance: ALECTINIB
     Indication: NON-SMALL CELL LUNG CANCER
     Route: 048
     Dates: start: 20141203

REACTIONS (9)
  - Neutrophil count decreased [Recovered/Resolved]
  - Rash [Recovered/Resolved]
  - Pruritus [Unknown]
  - Constipation [Recovered/Resolved]
  - Otitis media [Not Recovered/Not Resolved]
  - Deafness unilateral [Unknown]
  - Dysgeusia [Recovered/Resolved]
  - Macular degeneration [Not Recovered/Not Resolved]
  - White blood cell count decreased [Recovered/Resolved]

NARRATIVE: CASE EVENT DATE: 20141205
